FAERS Safety Report 17690884 (Version 4)
Quarter: 2020Q3

REPORT INFORMATION
  Report Type: Report from Study
  Country: None (occurrence: BE)
  Receive Date: 20200422
  Receipt Date: 20200817
  Transmission Date: 20201102
  Serious: Yes (Hospitalization)
  Sender: FDA-Public Use
  Company Number: BE-ABBVIE-20K-013-3373020-00

PATIENT
  Sex: Female

DRUGS (7)
  1. DUODOPA [Suspect]
     Active Substance: CARBIDOPA\LEVODOPA
     Dosage: MD=3ML, CD=1.7ML/HR DURING 16HRS, ED=1ML, ND=1.7ML/HR DURING?8HRS
     Route: 050
     Dates: start: 20200420, end: 20200421
  2. DUODOPA [Suspect]
     Active Substance: CARBIDOPA\LEVODOPA
     Dosage: MD=3ML, CD=1.7ML/HR DURING 16HRS, ED=1ML, ND=1.7ML/HR DURING 8HRS
     Route: 050
     Dates: start: 20190913, end: 20200209
  3. DUODOPA [Suspect]
     Active Substance: CARBIDOPA\LEVODOPA
     Dosage: MD=0ML, CD=1.7ML/HR DURING 16HRS, ED=1ML
     Route: 050
     Dates: start: 20200421
  4. DUODOPA [Suspect]
     Active Substance: CARBIDOPA\LEVODOPA
     Dosage: DOSES CONTINUOUSLY MONITORED AND ADAPTED
     Route: 050
     Dates: start: 20101008, end: 20190913
  5. DUODOPA [Suspect]
     Active Substance: CARBIDOPA\LEVODOPA
     Dosage: MD=3ML, CD=1.6ML/HR DURING 16HRS, ED=1ML, ND=1.7ML/HR DURING?8HRS
     Route: 050
     Dates: start: 20200209, end: 20200420
  6. DUODOPA [Suspect]
     Active Substance: CARBIDOPA\LEVODOPA
     Indication: PARKINSON^S DISEASE
     Dosage: MD=3.5ML, CD=1.6ML/HR DURING 16HRS, ED=1ML
     Route: 050
     Dates: start: 20101004, end: 20101008
  7. LEVODOPA BENSERAZIDE [Concomitant]
     Active Substance: BENSERAZIDE\LEVODOPA
     Indication: PRODUCT USED FOR UNKNOWN INDICATION

REACTIONS (6)
  - Overdose [Unknown]
  - Freezing phenomenon [Unknown]
  - Fall [Recovered/Resolved]
  - Mobility decreased [Unknown]
  - Dyskinesia [Not Recovered/Not Resolved]
  - Anxiety [Unknown]
